FAERS Safety Report 6398388-8 (Version None)
Quarter: 2009Q4

REPORT INFORMATION
  Report Type: 
  Country: None (occurrence: None)
  Receive Date: 20091013
  Receipt Date: 20091005
  Transmission Date: 20100525
  Serious: Yes (Death, Hospitalization)
  Sender: FDA-Public Use
  Company Number: TW-TEVA-211521ISR

PATIENT
  Age: 52 Year
  Sex: Female

DRUGS (5)
  1. VINCRISTINE [Suspect]
     Dates: start: 20070827, end: 20080109
  2. RITUXIMAB [Suspect]
     Dates: start: 20070827, end: 20080109
  3. CYCLOPHOSPHAMIDE [Suspect]
     Dates: start: 20070827, end: 20080109
  4. DOXORUBICIN HCL [Suspect]
     Dates: start: 20070827, end: 20080109
  5. PREDNISOLONE [Suspect]
     Dates: start: 20070827, end: 20080109

REACTIONS (1)
  - HEPATITIS B VIRUS TEST [None]
